FAERS Safety Report 7627054-3 (Version None)
Quarter: 2011Q3

REPORT INFORMATION
  Report Type: 
  Country: None (occurrence: None)
  Receive Date: 20110721
  Receipt Date: 20110707
  Transmission Date: 20111222
  Serious: Yes (Death)
  Sender: FDA-Public Use
  Company Number: US-PFIZER INC-2010001007

PATIENT
  Age: 63 Year
  Sex: Female

DRUGS (5)
  1. ETHANOL [Suspect]
     Dosage: UNK
     Route: 048
  2. CITALOPRAM [Suspect]
     Dosage: UNK
     Route: 048
  3. ZOLPIDEM [Suspect]
     Dosage: UNK
     Route: 048
  4. ALPRAZOLAM [Suspect]
     Dosage: UNK
     Route: 048
  5. OLMESARTAN MEDOXOMIL AND HYDROCHLOROTHIZIDE [Suspect]
     Dosage: UNK
     Route: 048

REACTIONS (1)
  - COMPLETED SUICIDE [None]
